FAERS Safety Report 5683025-8 (Version None)
Quarter: 2008Q1

REPORT INFORMATION
  Report Type: 
  Country: None (occurrence: None)
  Receive Date: 20080327
  Receipt Date: 20080319
  Transmission Date: 20080703
  Serious: Yes (Life-Threatening, Hospitalization)
  Sender: FDA-Public Use
  Company Number: DE-BRISTOL-MYERS SQUIBB COMPANY-14117857

PATIENT
  Age: 56 Year
  Sex: Female

DRUGS (5)
  1. HOLOXAN [Suspect]
     Indication: MULTIPLE MYELOMA
     Route: 042
     Dates: start: 20080306, end: 20080308
  2. ETOPOSIDE [Concomitant]
     Route: 042
     Dates: start: 20080306, end: 20080308
  3. EPIRUBICIN [Concomitant]
     Route: 042
     Dates: start: 20080306, end: 20080306
  4. UROMITEXAN [Concomitant]
     Route: 042
     Dates: start: 20080306, end: 20080308
  5. PANTOZOL [Concomitant]
     Indication: GASTRITIS PROPHYLAXIS
     Route: 048
     Dates: start: 20080306

REACTIONS (4)
  - APHASIA [None]
  - COMA [None]
  - NEUROTOXICITY [None]
  - TOXIC ENCEPHALOPATHY [None]
